FAERS Safety Report 7446042-3 (Version None)
Quarter: 2011Q2

REPORT INFORMATION
  Report Type: 
  Country: None (occurrence: None)
  Receive Date: 20110429
  Receipt Date: 20110418
  Transmission Date: 20111010
  Serious: Yes (Other)
  Sender: FDA-Public Use
  Company Number: FR-JNJFOC-20110408410

PATIENT
  Age: 76 Year
  Sex: Male

DRUGS (6)
  1. CARDENSIEL [Concomitant]
     Route: 065
  2. CORTANCYL [Concomitant]
     Indication: RHEUMATOID ARTHRITIS
     Route: 065
  3. CRESTOR [Concomitant]
     Route: 065
  4. BIPRETERAX [Concomitant]
     Route: 065
  5. METHOTREXATE [Concomitant]
     Indication: RHEUMATOID ARTHRITIS
  6. REMICADE [Suspect]
     Indication: PRODUCT USED FOR UNKNOWN INDICATION
     Route: 042

REACTIONS (1)
  - RENAL CANCER [None]
